FAERS Safety Report 25589842 (Version 3)
Quarter: 2025Q3

REPORT INFORMATION
  Report Type: Report from Study
  Country: PH (occurrence: PH)
  Receive Date: 20250722
  Receipt Date: 20250818
  Transmission Date: 20251021
  Serious: Yes (Death, Hospitalization)
  Sender: ROCHE
  Company Number: PH-ROCHE-10000338783

PATIENT
  Sex: Male
  Weight: 80 kg

DRUGS (2)
  1. TECENTRIQ [Suspect]
     Active Substance: ATEZOLIZUMAB
     Indication: Product used for unknown indication
     Route: 065
  2. AVASTIN [Suspect]
     Active Substance: BEVACIZUMAB
     Indication: Product used for unknown indication
     Route: 065

REACTIONS (5)
  - Oncologic complication [Fatal]
  - Diabetic complication [Fatal]
  - Blood disorder [Fatal]
  - Loss of consciousness [Unknown]
  - Blood glucose decreased [Unknown]
